FAERS Safety Report 10282372 (Version 2)
Quarter: 2014Q3

REPORT INFORMATION
  Report Type: Report from Study
  Country: GB (occurrence: GB)
  Receive Date: 20140707
  Receipt Date: 20140816
  Transmission Date: 20150326
  Serious: Yes (Death)
  Sender: FDA-Public Use
  Company Number: GB-ABBVIE-14P-167-1256618-00

PATIENT
  Sex: Female
  Weight: 60 kg

DRUGS (1)
  1. HUMIRA [Suspect]
     Active Substance: ADALIMUMAB
     Indication: RHEUMATOID ARTHRITIS
     Route: 058
     Dates: start: 20030707, end: 20060927

REACTIONS (5)
  - Chronic obstructive pulmonary disease [Fatal]
  - Dementia [Fatal]
  - Cardiac failure congestive [Fatal]
  - Pneumonia [Fatal]
  - Acute coronary syndrome [Fatal]
